FAERS Safety Report 6921669-3 (Version None)
Quarter: 2010Q3

REPORT INFORMATION
  Report Type: 
  Country: None (occurrence: None)
  Receive Date: 20100812
  Receipt Date: 20100731
  Transmission Date: 20110219
  Serious: Yes (Other)
  Sender: FDA-Public Use
  Company Number: BR-PFIZER INC-2010097336

PATIENT
  Age: 19 Year
  Sex: Male

DRUGS (11)
  1. GEODON [Suspect]
     Dosage: 40 MG, UNK
     Route: 048
  2. ALPRAZOLAM [Suspect]
     Dosage: 1 MG, 2X/DAY
  3. ALPRAZOLAM [Suspect]
     Dosage: 2 MG
  4. CITALOPRAM [Suspect]
     Dosage: 60 MG, UNK
  5. PAROXETINE [Suspect]
     Dosage: 60 MG, UNK
     Route: 048
  6. VALPROATE SEMISODIUM [Suspect]
     Route: 048
  7. CARBAMAZEPINE [Suspect]
     Dosage: 100 MG, UNK
     Route: 048
  8. RISPERIDONE [Suspect]
     Dosage: 3 MG, UNK
  9. QUETIAPINE [Suspect]
     Dosage: 200 MG, UNK
  10. OLANZAPINE [Suspect]
     Dosage: 15 MG, UNK
  11. ARIPIPRAZOLE [Suspect]
     Dosage: 10 MG, UNK

REACTIONS (11)
  - AFFECTIVE DISORDER [None]
  - ANXIETY [None]
  - BODY TEMPERATURE DECREASED [None]
  - DEPRESSIVE SYMPTOM [None]
  - DEREALISATION [None]
  - DRUG INEFFECTIVE [None]
  - EXTRAPYRAMIDAL DISORDER [None]
  - PANIC ATTACK [None]
  - PHOBIA [None]
  - SOMNOLENCE [None]
  - TEMPERATURE INTOLERANCE [None]
